FAERS Safety Report 11045752 (Version 2)
Quarter: 2015Q2

REPORT INFORMATION
  Report Type: Spontaneous
  Country: US (occurrence: US)
  Receive Date: 20150417
  Receipt Date: 20150421
  Transmission Date: 20150821
  Serious: No
  Sender: FDA-Public Use
  Company Number: US-GLAXOSMITHKLINE-US2015029930

PATIENT
  Age: 50 Year
  Sex: Male

DRUGS (1)
  1. NICODERM CQ [Suspect]
     Active Substance: NICOTINE
     Indication: SMOKING CESSATION THERAPY
     Dosage: 21 MG, UNK
     Route: 062
     Dates: start: 2015

REACTIONS (8)
  - Application site erythema [Unknown]
  - Application site rash [Unknown]
  - Application site erosion [Unknown]
  - Application site reaction [Unknown]
  - Application site haemorrhage [Unknown]
  - Application site pruritus [Unknown]
  - Hypersensitivity [Unknown]
  - Application site vesicles [Unknown]
